FAERS Safety Report 9392201 (Version 4)
Quarter: 2014Q1

REPORT INFORMATION
  Report Type: Spontaneous
  Country: US (occurrence: US)
  Receive Date: 20130710
  Receipt Date: 20140207
  Transmission Date: 20141002
  Serious: Yes (Death, Other)
  Sender: FDA-Public Use
  Company Number: US-ALEXION PHARMACEUTICALS INC.-A201301540

PATIENT
  Age: 22 Year
  Sex: Female
  Weight: 86 kg

DRUGS (1)
  1. SOLIRIS 300MG [Suspect]
     Indication: HAEMOLYTIC URAEMIC SYNDROME
     Dosage: UNK, SINGLE
     Route: 042
     Dates: start: 20130620, end: 20130620

REACTIONS (6)
  - Disease progression [Fatal]
  - Pulseless electrical activity [Fatal]
  - Coma [Fatal]
  - Cardiomyopathy [Fatal]
  - Abortion induced [Unknown]
  - Exposure during pregnancy [Unknown]
